FAERS Safety Report 6713789-3 (Version None)
Quarter: 2010Q2

REPORT INFORMATION
  Report Type: 
  Country: None (occurrence: None)
  Receive Date: 20100506
  Receipt Date: 20100504
  Transmission Date: 20101027
  Serious: Yes (Life-Threatening, Hospitalization)
  Sender: FDA-Public Use
  Company Number: GXKR2009DE03013

PATIENT
  Age: 66 Year
  Sex: Male
  Weight: 86 kg

DRUGS (4)
  1. DILTAHEXAL (NGX) [Suspect]
     Indication: HYPERTENSION
     Dosage: 120 MG, QD
     Route: 048
     Dates: end: 20090206
  2. DOXEPIN ^RATIOPHARM^ [Suspect]
     Indication: DEPRESSION
     Dosage: 50 MG, PRN
     Route: 048
  3. DIOVAN HCT [Concomitant]
     Route: 048
  4. VALPROAT ^AZUPHARMA^ [Concomitant]
     Route: 048

REACTIONS (1)
  - ATRIOVENTRICULAR BLOCK SECOND DEGREE [None]
